FAERS Safety Report 11224080 (Version 3)
Quarter: 2015Q3

REPORT INFORMATION
  Report Type: Spontaneous
  Country: JP (occurrence: None)
  Receive Date: 20150625
  Receipt Date: 20150901
  Transmission Date: 20151125
  Serious: Yes (Hospitalization)
  Sender: FDA-Public Use
  Company Number: 2015FE01339

PATIENT
  Age: 68 Year
  Sex: Female
  Weight: 59 kg

DRUGS (9)
  1. DESMOPRESSIN (DESMOPRESSIN) [Suspect]
     Active Substance: DESMOPRESSIN
     Indication: DIABETES INSIPIDUS
     Route: 045
     Dates: start: 2004, end: 20130823
  2. MINIRIN [Suspect]
     Active Substance: DESMOPRESSIN ACETATE
     Indication: DIABETES INSIPIDUS
     Route: 048
     Dates: start: 20130823, end: 20130824
  3. LENDORMIN DAINIPPO (BROTIZOLAM) [Concomitant]
  4. CORTRIL/00028601/ (HYDROCORTISONE) [Concomitant]
  5. HUMATROPE (SOMATROPIN) [Concomitant]
  6. AMLODIN (AMLODIPINE BESILATE) [Concomitant]
  7. AVAPRO [Concomitant]
     Active Substance: IRBESARTAN
  8. THYRADIN-S (LEVOTHYROXINE SODIUM) [Concomitant]
  9. ZETIA [Concomitant]
     Active Substance: EZETIMIBE

REACTIONS (3)
  - Constipation [None]
  - Hyponatraemia [None]
  - Colitis ischaemic [None]
